FAERS Safety Report 7230695-9 (Version None)
Quarter: 2011Q1

REPORT INFORMATION
  Report Type: 
  Country: None (occurrence: None)
  Receive Date: 20110118
  Receipt Date: 20110114
  Transmission Date: 20110831
  Serious: Yes (Other)
  Sender: FDA-Public Use
  Company Number: US-PFIZER INC-2011010265

PATIENT
  Sex: Female
  Weight: 60.3 kg

DRUGS (5)
  1. DEPO-SUBQ PROVERA 104 [Suspect]
     Indication: CONTRACEPTION
     Dosage: UNK
     Route: 058
  2. HUMIRA [Concomitant]
     Indication: CROHN'S DISEASE
     Dosage: UNK
  3. LEVOFLOXACIN [Concomitant]
     Indication: CROHN'S DISEASE
     Dosage: 25 MG, UNK
  4. MERCAPTOPURINE [Concomitant]
     Indication: CROHN'S DISEASE
     Dosage: UNK
  5. CANASA [Concomitant]
     Indication: CROHN'S DISEASE
     Dosage: UNK

REACTIONS (1)
  - INJECTION SITE REACTION [None]
